FAERS Safety Report 9220266 (Version 1)
Quarter: 2013Q1

REPORT INFORMATION
  Report Type: Spontaneous
  Country: US (occurrence: None)
  Receive Date: 20120830
  Receipt Date: 20120830
  Transmission Date: 20140127
  Serious: Yes (Other)
  Sender: FDA-Public Use
  Company Number: US008721

PATIENT
  Age: 17 Year
  Sex: Female

DRUGS (1)
  1. GABITRIL [Suspect]
     Indication: PETIT MAL EPILEPSY
     Dates: start: 19980109

REACTIONS (1)
  - Convulsion [None]
